FAERS Safety Report 11169021 (Version 1)
Quarter: 2015Q2

REPORT INFORMATION
  Report Type: Spontaneous
  Country: JP (occurrence: JP)
  Receive Date: 20150605
  Receipt Date: 20150605
  Transmission Date: 20150821
  Serious: Yes (Death)
  Sender: FDA-Public Use
  Company Number: JP-ELI_LILLY_AND_COMPANY-JP201505008977

PATIENT
  Age: 62 Year
  Sex: Female
  Weight: 48.7 kg

DRUGS (9)
  1. PARIET [Concomitant]
     Active Substance: RABEPRAZOLE SODIUM
     Dosage: 10 MG, QD
     Route: 048
     Dates: start: 20140911, end: 20150430
  2. GEMZAR [Suspect]
     Active Substance: GEMCITABINE HYDROCHLORIDE
     Indication: ADENOCARCINOMA PANCREAS
     Dosage: 800 MG/M2, OTHER
     Route: 042
     Dates: start: 20150430, end: 20150430
  3. GASMOTIN [Concomitant]
     Active Substance: MOSAPRIDE CITRATE
     Dosage: 5 MG, TID
     Route: 048
     Dates: start: 20121106, end: 20150430
  4. ZOMETA [Concomitant]
     Active Substance: ZOLEDRONIC ACID
     Dosage: 4 DF, QD
     Dates: start: 20150430
  5. URSO [Concomitant]
     Active Substance: URSODIOL
     Dosage: 100 MG, TID
     Route: 048
     Dates: start: 20130325, end: 20150430
  6. LIPACREON [Concomitant]
     Active Substance: PANCRELIPASE
     Dosage: 600 MG, TID
     Route: 048
     Dates: start: 20130108, end: 20150430
  7. TRAVELMIN                          /00517301/ [Concomitant]
     Indication: DIZZINESS
     Dosage: UNK, TID
     Route: 048
     Dates: start: 20150330, end: 20150430
  8. OXINORM                            /00045603/ [Concomitant]
     Indication: CANCER PAIN
     Dosage: 2.5 MG, UNK
     Route: 048
     Dates: start: 20150205, end: 20150430
  9. ABRAXANE [Suspect]
     Active Substance: PACLITAXEL
     Indication: ADENOCARCINOMA PANCREAS
     Dosage: 100 MG/M2, OTHER
     Route: 042
     Dates: start: 20150430, end: 20150430

REACTIONS (2)
  - Pneumonitis [Fatal]
  - Circulatory collapse [Fatal]

NARRATIVE: CASE EVENT DATE: 20150430
